FAERS Safety Report 12865729 (Version 1)
Quarter: 2016Q4

REPORT INFORMATION
  Report Type: Spontaneous
  Country: US (occurrence: US)
  Receive Date: 20161019
  Receipt Date: 20161019
  Transmission Date: 20170207
  Serious: Yes (Other)
  Sender: FDA-Public Use
  Company Number: None

PATIENT
  Age: 47 Year
  Sex: Female

DRUGS (1)
  1. COPAXONE [Suspect]
     Active Substance: GLATIRAMER ACETATE
     Indication: MULTIPLE SCLEROSIS

REACTIONS (6)
  - Flushing [None]
  - Chest discomfort [None]
  - Asthma [None]
  - Dyspnoea [None]
  - Chest pain [None]
  - Hypertension [None]

NARRATIVE: CASE EVENT DATE: 20160913
